FAERS Safety Report 7755324-7 (Version None)
Quarter: 2011Q3

REPORT INFORMATION
  Report Type: 
  Country: None (occurrence: None)
  Receive Date: 20110914
  Receipt Date: 20110830
  Transmission Date: 20111222
  Serious: Yes (Other)
  Sender: FDA-Public Use
  Company Number: 2011-3601

PATIENT
  Age: 21 Year
  Sex: Male
  Weight: 56.7 kg

DRUGS (2)
  1. SOMATULINE DEPOT [Suspect]
     Indication: HYPERINSULINISM
     Dosage: NOT REPORTED (NOT REPORTED, 1 IN 30 D), SUBCUTANEOUS
     Route: 058
     Dates: start: 20100228
  2. SOMATULINE DEPOT [Suspect]
     Indication: CONVULSION
     Dosage: NOT REPORTED (NOT REPORTED, 1 IN 30 D), SUBCUTANEOUS
     Route: 058
     Dates: start: 20100228

REACTIONS (3)
  - CONDITION AGGRAVATED [None]
  - MUSCLE TWITCHING [None]
  - CONVULSION [None]
